FAERS Safety Report 6594473-6 (Version None)
Quarter: 2010Q1

REPORT INFORMATION
  Report Type: 
  Country: None (occurrence: None)
  Receive Date: 20100222
  Receipt Date: 20100119
  Transmission Date: 20100710
  Serious: No
  Sender: FDA-Public Use
  Company Number: US-BAYER-201010999BCC

PATIENT
  Age: 71 Year
  Sex: Female
  Weight: 67 kg

DRUGS (10)
  1. ALEVE (CAPLET) [Suspect]
     Indication: ARTHRITIS
     Dosage: TOTAL DAILY DOSE: 220 MG  UNIT DOSE: 220 MG
     Route: 048
     Dates: start: 20080101, end: 20080101
  2. ALEVE (CAPLET) [Suspect]
     Indication: ARTHRITIS
     Dosage: TOTAL DAILY DOSE: 440 MG  UNIT DOSE: 220 MG
     Route: 048
     Dates: start: 20091101
  3. NORVASC [Concomitant]
     Route: 065
  4. SIMVASTATIN [Concomitant]
     Route: 065
  5. TARKA [Concomitant]
     Route: 065
  6. HYZAAR [Concomitant]
     Dosage: UNIT DOSE: 50/12.5
     Route: 065
  7. LEVOTHYROXINE SODIUM [Concomitant]
     Route: 065
  8. B COMPLETE NATURES BOUNTY [Concomitant]
     Route: 065
  9. CENTRUM [Concomitant]
     Route: 065
  10. CRANBERRY [Concomitant]
     Dosage: UNIT DOSE: 1 DF
     Route: 065

REACTIONS (1)
  - ARTHRITIS [None]
